FAERS Safety Report 24417148 (Version 1)
Quarter: 2024Q4

REPORT INFORMATION
  Report Type: Spontaneous
  Country: FR (occurrence: FR)
  Receive Date: 20241009
  Receipt Date: 20241009
  Transmission Date: 20250114
  Serious: Yes (Life-Threatening)
  Sender: AMERICAN REGENT
  Company Number: FR-AMERICAN REGENT INC-2024003762

PATIENT
  Age: 36 Year
  Sex: Female

DRUGS (2)
  1. FERINJECT [Suspect]
     Active Substance: FERRIC CARBOXYMALTOSE
     Indication: Iron deficiency anaemia
     Dosage: 1000 MILLIGRAM (ALSO REPORTED AS ^DRUG NOT ADMINISTERED^)
     Route: 042
     Dates: start: 20240204, end: 20240204
  2. VENOFER [Suspect]
     Active Substance: IRON SUCROSE
     Indication: Iron deficiency anaemia
     Dosage: 1000 MILLIGRAM
     Route: 042
     Dates: start: 20240204, end: 20240204

REACTIONS (6)
  - Wrong product administered [Unknown]
  - Hot flush [Recovered/Resolved]
  - Hypotension [Recovered/Resolved]
  - Dyspnoea [Recovered/Resolved]
  - Overdose [Unknown]
  - Maternal exposure during pregnancy [Unknown]

NARRATIVE: CASE EVENT DATE: 20240204
